FAERS Safety Report 21811711 (Version 3)
Quarter: 2023Q1

REPORT INFORMATION
  Report Type: Spontaneous
  Country: JP (occurrence: JP)
  Receive Date: 20230103
  Receipt Date: 20230124
  Transmission Date: 20230418
  Serious: Yes (Other)
  Sender: FDA-Public Use
  Company Number: JP-ALLERGAN-2236971US

PATIENT
  Sex: Female

DRUGS (11)
  1. ALPHAGAN P [Suspect]
     Active Substance: BRIMONIDINE TARTRATE
     Indication: Glaucoma
     Dosage: 2 DROP
     Route: 047
     Dates: start: 20121125, end: 20190315
  2. ALPHAGAN P [Suspect]
     Active Substance: BRIMONIDINE TARTRATE
     Dosage: UNK
  3. LUMIGAN [Concomitant]
     Active Substance: BIMATOPROST
     Indication: Intraocular pressure increased
     Dosage: 1 DROP/DAY
     Route: 047
  4. TRAVATAN Z [Concomitant]
     Active Substance: TRAVOPROST
     Indication: Intraocular pressure increased
     Dosage: 1 DROP/ DAY
     Route: 047
  5. TIMOLOL [Concomitant]
     Active Substance: TIMOLOL
     Indication: Intraocular pressure increased
     Dosage: 1 DROP/ DAY
     Route: 047
  6. BRINZOLAMIDE\TIMOLOL MALEATE [Concomitant]
     Active Substance: BRINZOLAMIDE\TIMOLOL MALEATE
     Indication: Intraocular pressure increased
     Dosage: 2 DROP/ DAY
     Route: 047
  7. TIMOLEATE PF [Concomitant]
     Indication: Intraocular pressure increased
     Dosage: 1 DROP/ DAY
     Route: 047
  8. AZOPT [Concomitant]
     Active Substance: BRINZOLAMIDE
     Indication: Intraocular pressure increased
     Dosage: 2 DROP/ DAY
     Route: 047
  9. HYALURONATE SODIUM [Concomitant]
     Active Substance: HYALURONATE SODIUM
     Indication: Corneal disorder
     Dosage: ON A TIMELY BASIS
     Route: 047
  10. FLUOROMETHOLONE [Concomitant]
     Active Substance: FLUOROMETHOLONE
     Indication: Eye inflammation
     Dosage: 3 GTT, QD
     Route: 047
     Dates: start: 20150114
  11. FLUOROMETHOLONE [Concomitant]
     Active Substance: FLUOROMETHOLONE
     Dosage: 3 GTT, QD
     Route: 047
     Dates: start: 20150121

REACTIONS (2)
  - Corneal opacity [Not Recovered/Not Resolved]
  - Blepharitis [Unknown]

NARRATIVE: CASE EVENT DATE: 20161110
